FAERS Safety Report 6824648-X (Version None)
Quarter: 2010Q3

REPORT INFORMATION
  Report Type: 
  Country: None (occurrence: None)
  Receive Date: 20100708
  Receipt Date: 20061110
  Transmission Date: 20110219
  Serious: No
  Sender: FDA-Public Use
  Company Number: US-PFIZER INC-2006142390

PATIENT
  Sex: Female
  Weight: 58.97 kg

DRUGS (5)
  1. CHANTIX [Suspect]
     Indication: SMOKING CESSATION THERAPY
     Dates: start: 20061024, end: 20061102
  2. TOPROL-XL [Concomitant]
  3. PLAVIX [Concomitant]
  4. ISORDIL [Concomitant]
  5. PRAVACHOL [Concomitant]

REACTIONS (1)
  - NAUSEA [None]
